FAERS Safety Report 20047175 (Version 1)
Quarter: 2021Q4

REPORT INFORMATION
  Report Type: Spontaneous
  Country: US (occurrence: US)
  Receive Date: 20211109
  Receipt Date: 20211109
  Transmission Date: 20220303
  Serious: No
  Sender: FDA-Public Use
  Company Number: US-GSKCCFUS-Case-01211556_AE-70951

PATIENT
  Sex: Female

DRUGS (1)
  1. BENLYSTA [Suspect]
     Active Substance: BELIMUMAB
     Indication: Lymphadenopathy
     Dosage: UNK
     Route: 042
     Dates: start: 2021

REACTIONS (4)
  - Swelling [Unknown]
  - Lymphadenopathy [Unknown]
  - Drug ineffective [Unknown]
  - Off label use [Unknown]
